FAERS Safety Report 7404262-8 (Version None)
Quarter: 2011Q2

REPORT INFORMATION
  Report Type: 
  Country: None (occurrence: None)
  Receive Date: 20110408
  Receipt Date: 20110331
  Transmission Date: 20111010
  Serious: Yes (Hospitalization)
  Sender: FDA-Public Use
  Company Number: PHHO2011BR05768

PATIENT
  Sex: Male
  Weight: 68 kg

DRUGS (3)
  1. MYFORTIC [Suspect]
     Indication: RENAL TRANSPLANT
     Dosage: 720 MG, BID
     Route: 048
     Dates: start: 20110104
  2. PREDNISONE [Concomitant]
     Indication: RENAL TRANSPLANT
     Dosage: 20 MG
     Route: 048
     Dates: start: 20110104, end: 20110223
  3. TACROLIMUS [Suspect]
     Indication: RENAL TRANSPLANT
     Dosage: 5 MG, BID
     Route: 048
     Dates: start: 20110104, end: 20110223

REACTIONS (1)
  - CYTOMEGALOVIRUS INFECTION [None]
